FAERS Safety Report 7344792-0 (Version None)
Quarter: 2011Q1

REPORT INFORMATION
  Report Type: 
  Country: None (occurrence: None)
  Receive Date: 20110307
  Receipt Date: 20110307
  Transmission Date: 20110831
  Serious: Yes (Other)
  Sender: FDA-Public Use
  Company Number: None

PATIENT
  Age: 82 Year
  Sex: Female
  Weight: 102.0593 kg

DRUGS (5)
  1. HEPARIN SODIUM 25,000 UNITS -100 UNITS/ML- BRAUN [Suspect]
     Indication: DEEP VEIN THROMBOSIS
     Dosage: 250 ML BAG TITRATE IV DRIP
     Route: 041
     Dates: start: 20110303, end: 20110303
  2. ALBUTEROL [Concomitant]
  3. STEROID [Concomitant]
  4. BENADRYL [Concomitant]
  5. EPINEPHRINE [Concomitant]

REACTIONS (2)
  - ERYTHEMA [None]
  - DYSPNOEA [None]
